FAERS Safety Report 19098336 (Version 6)
Quarter: 2021Q2

REPORT INFORMATION
  Report Type: Spontaneous
  Country: US (occurrence: US)
  Receive Date: 20210406
  Receipt Date: 20210421
  Transmission Date: 20210717
  Serious: No
  Sender: FDA-Public Use
  Company Number: US-AMGEN-USASP2021050590

PATIENT
  Sex: Female

DRUGS (7)
  1. CYCLOPHOSPHAMIDE. [Concomitant]
     Active Substance: CYCLOPHOSPHAMIDE
  2. PREDNISONE. [Concomitant]
     Active Substance: PREDNISONE
  3. NEULASTA [Suspect]
     Active Substance: PEGFILGRASTIM
     Dosage: UNK
     Route: 065
  4. ONCOVIN [Concomitant]
     Active Substance: VINCRISTINE SULFATE
  5. NEULASTA [Suspect]
     Active Substance: PEGFILGRASTIM
     Indication: PRODUCT USED FOR UNKNOWN INDICATION
     Dosage: UNK
     Route: 065
  6. RITUXIMAB. [Concomitant]
     Active Substance: RITUXIMAB
  7. HYDROXYDAUNORUBICIN [Concomitant]
     Active Substance: DOXORUBICIN

REACTIONS (1)
  - Device malfunction [Unknown]

NARRATIVE: CASE EVENT DATE: 20210319
